FAERS Safety Report 8592647-6 (Version None)
Quarter: 2012Q3

REPORT INFORMATION
  Report Type: 
  Country: None (occurrence: None)
  Receive Date: 20120814
  Receipt Date: 20120801
  Transmission Date: 20120928
  Serious: Yes (Disabling)
  Sender: FDA-Public Use
  Company Number: US-ELI_LILLY_AND_COMPANY-US201208001265

PATIENT
  Sex: Female

DRUGS (3)
  1. HUMULIN N [Suspect]
     Indication: TYPE 1 DIABETES MELLITUS
     Dosage: UNK, UNKNOWN
     Dates: start: 19931001
  2. HUMULIN R [Suspect]
     Indication: TYPE 1 DIABETES MELLITUS
     Dosage: UNK, PRN
     Dates: start: 19931001
  3. HUMULIN N [Suspect]
     Dosage: 70 U, UNKNOWN

REACTIONS (10)
  - ARTHRALGIA [None]
  - IMMUNE SYSTEM DISORDER [None]
  - AUTOIMMUNE THYROIDITIS [None]
  - MUSCULOSKELETAL PAIN [None]
  - INFECTION [None]
  - HYPOGLYCAEMIA [None]
  - ADVERSE EVENT [None]
  - INTERVERTEBRAL DISC DEGENERATION [None]
  - URTICARIA [None]
  - HYPERSENSITIVITY [None]
